FAERS Safety Report 5218642-2 (Version None)
Quarter: 2007Q1

REPORT INFORMATION
  Report Type: 
  Country: None (occurrence: None)
  Receive Date: 20070122
  Receipt Date: 20070110
  Transmission Date: 20070707
  Serious: Yes (Other)
  Sender: FDA-Public Use
  Company Number: 2007JP000081

PATIENT
  Age: 65 Year
  Sex: Female
  Weight: 55.2 kg

DRUGS (7)
  1. TACROLIMUS CAPSULES (TACROLIMUS) CAPSULE [Suspect]
     Indication: RHEUMATOID ARTHRITIS
     Dosage: 1.5 MG, ORAL
     Route: 048
     Dates: start: 20060413, end: 20060608
  2. PREDNISOLONE [Concomitant]
  3. MOBIC (MELOXICAM) PER ORAL NOS [Concomitant]
  4. MOHRUS (KETOPROFEN) TAPE [Concomitant]
  5. ISODINE (POVIDONE-IODINE) MOUTH WASH [Concomitant]
  6. MAINTATE (BISOPROLOL FUMARATE) PER ORAL NOS [Concomitant]
  7. MEVALOTIN (PRAVASTATIN SODIUM) PER ORAL NOS [Concomitant]

REACTIONS (1)
  - SUBARACHNOID HAEMORRHAGE [None]
